FAERS Safety Report 7635998-1 (Version None)
Quarter: 2011Q3

REPORT INFORMATION
  Report Type: 
  Country: None (occurrence: None)
  Receive Date: 20110726
  Receipt Date: 20110712
  Transmission Date: 20111222
  Serious: Yes (Hospitalization, Disabling, Other)
  Sender: FDA-Public Use
  Company Number: US-BAYER-2011-060911

PATIENT
  Age: 42 Year
  Sex: Male
  Weight: 102 kg

DRUGS (6)
  1. ASPIRIN [Suspect]
     Dosage: UNK
     Route: 048
  2. ARTHROTEC [Suspect]
     Indication: BONE PAIN
     Dosage: 75 MG, TID
     Route: 048
     Dates: start: 20100601, end: 20100701
  3. PROTONIX [Suspect]
     Indication: GASTROINTESTINAL DISORDER
     Dosage: UNK
     Route: 048
     Dates: start: 20040101
  4. VICODIN [Suspect]
     Indication: BONE PAIN
     Dosage: 5 / 500 MG
     Route: 048
     Dates: start: 20100701
  5. TRAZODONE HCL [Concomitant]
     Indication: SLEEP DISORDER
     Dosage: 50 MG, HS
     Route: 048
     Dates: start: 19800101
  6. IBUPROFEN [Suspect]
     Dosage: UNK
     Route: 048

REACTIONS (14)
  - FALL [None]
  - LOWER LIMB FRACTURE [None]
  - SCAR [None]
  - AMNESIA [None]
  - MULTIPLE ALLERGIES [None]
  - HEPATIC FUNCTION ABNORMAL [None]
  - VOMITING [None]
  - RASH [None]
  - GAIT DISTURBANCE [None]
  - BONE PAIN [None]
  - LEUKAEMIA [None]
  - OEDEMA PERIPHERAL [None]
  - HYPERSENSITIVITY [None]
  - PSORIASIS [None]
